FAERS Safety Report 7280978-1 (Version None)
Quarter: 2011Q1

REPORT INFORMATION
  Report Type: 
  Country: None (occurrence: None)
  Receive Date: 20110203
  Receipt Date: 20110203
  Transmission Date: 20110831
  Serious: Yes (Other)
  Sender: FDA-Public Use
  Company Number: None

PATIENT
  Age: 28 Year
  Sex: Male
  Weight: 78 kg

DRUGS (6)
  1. FERROUS SULFATE TAB [Concomitant]
  2. TYGACIL [Suspect]
     Indication: WOUND INFECTION
     Dosage: 100MG ONCE IV; 50MG Q12HR IV
     Route: 042
     Dates: start: 20101231, end: 20110106
  3. HEPARIN [Concomitant]
  4. GENTAMICIN [Concomitant]
  5. ZOLPIDEM [Concomitant]
  6. HYDROMORPHONE [Concomitant]

REACTIONS (4)
  - NAUSEA [None]
  - ABDOMINAL DISCOMFORT [None]
  - PANCREATITIS ACUTE [None]
  - MUSCLE SPASMS [None]
